FAERS Safety Report 6574906-1 (Version None)
Quarter: 2010Q1

REPORT INFORMATION
  Report Type: 
  Country: None (occurrence: None)
  Receive Date: 20100209
  Receipt Date: 20100201
  Transmission Date: 20100710
  Serious: Yes (Hospitalization, Other)
  Sender: FDA-Public Use
  Company Number: DE-ABBOTT-08P-062-0476594-00

PATIENT
  Age: 61 Year
  Sex: Male
  Weight: 85 kg

DRUGS (9)
  1. ZEMPLAR [Suspect]
     Indication: HYPERPARATHYROIDISM SECONDARY
     Dosage: 10-30 MCG PER WEEK
     Route: 042
     Dates: start: 20060828, end: 20061111
  2. CALCIUM-ACETAT [Concomitant]
     Indication: HYPERPARATHYROIDISM SECONDARY
  3. VITAMIN D [Concomitant]
     Indication: HYPERPARATHYROIDISM SECONDARY
     Route: 042
  4. FUROSEMID [Concomitant]
     Indication: RENAL FAILURE
     Dates: start: 20031121
  5. ALLOPURINOL [Concomitant]
     Indication: RENAL FAILURE
     Dates: start: 20030505
  6. ENALAPRIL MALEATE [Concomitant]
     Indication: HYPERTENSION
     Dates: start: 20031112
  7. ACETYLSALICYLIC ACID [Concomitant]
     Indication: CEREBROVASCULAR ACCIDENT
     Dates: start: 20030520
  8. LERCANIDIPINE [Concomitant]
     Indication: HYPERTENSION
     Dates: start: 20060719
  9. ERYTHROPOETIN [Concomitant]
     Indication: ANAEMIA
     Dosage: 12000 IE PER WEEK
     Dates: start: 20051101

REACTIONS (1)
  - RENAL FAILURE [None]
